FAERS Safety Report 23688529 (Version 1)
Quarter: 2024Q1

REPORT INFORMATION
  Report Type: Report from Study
  Country: ZA (occurrence: ZA)
  Receive Date: 20240329
  Receipt Date: 20240329
  Transmission Date: 20240410
  Serious: Yes (Hospitalization)
  Sender: FDA-Public Use
  Company Number: ZA-ABBVIE-5696258

PATIENT
  Age: 22 Year
  Sex: Female

DRUGS (1)
  1. HUMIRA [Suspect]
     Active Substance: ADALIMUMAB
     Indication: Psoriatic arthropathy
     Dosage: FORM STRENGTH: 40 MG
     Route: 058
     Dates: start: 20230802, end: 202312

REACTIONS (3)
  - Acute lymphocytic leukaemia [Not Recovered/Not Resolved]
  - Sepsis [Unknown]
  - Critical illness [Unknown]

NARRATIVE: CASE EVENT DATE: 20231201
